FAERS Safety Report 8177149-3 (Version None)
Quarter: 2012Q1

REPORT INFORMATION
  Report Type: 
  Country: None (occurrence: None)
  Receive Date: 20120301
  Receipt Date: 20120222
  Transmission Date: 20120608
  Serious: Yes (Hospitalization)
  Sender: FDA-Public Use
  Company Number: FR-GLAXOSMITHKLINE-B0783562A

PATIENT
  Age: 88 Year
  Sex: Male

DRUGS (4)
  1. PAROXETINE HYDROCHLORIDE [Suspect]
     Indication: DEPRESSION
     Dosage: 10MG PER DAY
     Route: 048
     Dates: start: 20110101
  2. PREVISCAN [Concomitant]
     Route: 065
  3. CRESTOR [Concomitant]
     Route: 065
  4. ANTIHYPERTENSIVE (UNSPECIFIED) [Concomitant]
     Route: 065

REACTIONS (2)
  - COMA [None]
  - EPILEPSY [None]
